FAERS Safety Report 5079887-8 (Version None)
Quarter: 2006Q3

REPORT INFORMATION
  Report Type: 
  Country: None (occurrence: None)
  Receive Date: 20060810
  Receipt Date: 20060801
  Transmission Date: 20061208
  Serious: Yes (Death)
  Sender: FDA-Public Use
  Company Number: 2006VX000921

PATIENT
  Age: 73 Year
  Sex: Female
  Weight: 51 kg

DRUGS (5)
  1. INTERFERON ALFACON-1 (INTERFERON ALFACON-1)  (9 UG) [Suspect]
     Indication: HEPATITIS C
     Dosage: 9 MIU;TIW;SC
     Route: 058
     Dates: start: 20060426, end: 20060524
  2. STRONG NEO-MINOPHAGEN C [Concomitant]
  3. URSO [Concomitant]
  4. GLYCYRON [Concomitant]
  5. ARTIST [Concomitant]

REACTIONS (10)
  - BLOOD PRESSURE SYSTOLIC INCREASED [None]
  - CEREBRAL HAEMORRHAGE [None]
  - MYDRIASIS [None]
  - PLATELET COUNT DECREASED [None]
  - PUPILLARY REFLEX IMPAIRED [None]
  - PUTAMEN HAEMORRHAGE [None]
  - SNORING [None]
  - URINARY INCONTINENCE [None]
  - VOMITING [None]
  - WHITE BLOOD CELL COUNT DECREASED [None]
